FAERS Safety Report 5245734-4 (Version None)
Quarter: 2007Q1

REPORT INFORMATION
  Report Type: 
  Country: None (occurrence: None)
  Receive Date: 20070223
  Receipt Date: 20070214
  Transmission Date: 20070707
  Serious: Yes (Other)
  Sender: FDA-Public Use
  Company Number: GB-MERCK-0610GBR00050

PATIENT
  Age: 47 Year
  Sex: Male

DRUGS (2)
  1. PROPECIA [Suspect]
     Route: 065
     Dates: start: 20010101, end: 20060101
  2. [THERAPY UNSPECIFIED] [Concomitant]
     Indication: ULCER
     Route: 065

REACTIONS (1)
  - INFERTILITY [None]
